FAERS Safety Report 4839041-9 (Version None)
Quarter: 2005Q4

REPORT INFORMATION
  Report Type: 
  Country: None (occurrence: None)
  Receive Date: 20051031
  Receipt Date: 20050908
  Transmission Date: 20060501
  Serious: Yes (Other)
  Sender: FDA-Public Use
  Company Number: 200516517US

PATIENT
  Age: 43 Year
  Sex: Male
  Weight: 76 kg

DRUGS (4)
  1. KETEK [Suspect]
     Indication: SINUSITIS
     Dosage: 400 MG BID PO
     Route: 048
     Dates: start: 20050801, end: 20050907
  2. METOPROLOL [Concomitant]
  3. ATIVAN [Concomitant]
  4. CLAVULANATE POTASSIUM, AMOXICILLIN TRIHYDRATE (AUGMENTIN) [Concomitant]

REACTIONS (3)
  - EXTRASYSTOLES [None]
  - PALPITATIONS [None]
  - PHARYNGOLARYNGEAL PAIN [None]
